FAERS Safety Report 7423008-0 (Version None)
Quarter: 2011Q2

REPORT INFORMATION
  Report Type: 
  Country: None (occurrence: None)
  Receive Date: 20110419
  Receipt Date: 20110411
  Transmission Date: 20111010
  Serious: Yes (Hospitalization)
  Sender: FDA-Public Use
  Company Number: US-EISAI INC-E7389-01196-CLI-US

PATIENT
  Sex: Female
  Weight: 41 kg

DRUGS (5)
  1. PROMETHAZINE [Concomitant]
     Route: 048
     Dates: start: 20101023
  2. NEULASTA [Concomitant]
     Route: 058
     Dates: start: 20101014
  3. E7389 (BOLD) [Suspect]
     Indication: NON-SMALL CELL LUNG CANCER
     Route: 041
     Dates: start: 20101006
  4. ERLOTINIB [Concomitant]
     Indication: NON-SMALL CELL LUNG CANCER
     Route: 048
     Dates: start: 20101020
  5. IMODIUM [Concomitant]
     Route: 048
     Dates: start: 20101105

REACTIONS (1)
  - DEHYDRATION [None]
